FAERS Safety Report 19224310 (Version 1)
Quarter: 2021Q2

REPORT INFORMATION
  Report Type: Spontaneous
  Country: US (occurrence: US)
  Receive Date: 20210505
  Receipt Date: 20210505
  Transmission Date: 20210717
  Serious: No
  Sender: FDA-Public Use
  Company Number: US-ROCHE-2593995

PATIENT
  Age: 62 Year
  Sex: Female

DRUGS (3)
  1. IMODIUM [Concomitant]
     Active Substance: LOPERAMIDE HYDROCHLORIDE
  2. ESBRIET [Suspect]
     Active Substance: PIRFENIDONE
     Indication: IDIOPATHIC PULMONARY FIBROSIS
     Dosage: THREE PILLS THREE TIMES A DAY WITH MEALS
     Route: 048
     Dates: start: 202004
  3. ESBRIET [Suspect]
     Active Substance: PIRFENIDONE
     Indication: IDIOPATHIC PULMONARY FIBROSIS
     Route: 048
     Dates: start: 20200403

REACTIONS (6)
  - Visual impairment [Unknown]
  - Pain [Not Recovered/Not Resolved]
  - Vomiting [Unknown]
  - Dysgeusia [Not Recovered/Not Resolved]
  - Diarrhoea [Unknown]
  - Flatulence [Not Recovered/Not Resolved]

NARRATIVE: CASE EVENT DATE: 20200430
